FAERS Safety Report 7045568-4 (Version None)
Quarter: 2010Q4

REPORT INFORMATION
  Report Type: 
  Country: None (occurrence: None)
  Receive Date: 20101013
  Receipt Date: 20101013
  Transmission Date: 20110411
  Serious: Yes (Other)
  Sender: FDA-Public Use
  Company Number: None

PATIENT
  Age: 52 Year
  Sex: Male
  Weight: 68.9467 kg

DRUGS (1)
  1. OXYCONTIN [Suspect]
     Indication: BACK PAIN
     Dosage: 4 1/TWICE DAY 2/BEDTIME PO
     Route: 048
     Dates: start: 20101008, end: 20101010

REACTIONS (6)
  - ABDOMINAL PAIN UPPER [None]
  - CONSTIPATION [None]
  - DRUG TOLERANCE [None]
  - MALAISE [None]
  - PRODUCT FORMULATION ISSUE [None]
  - VOMITING [None]
